FAERS Safety Report 14259067 (Version 1)
Quarter: 2017Q4

REPORT INFORMATION
  Report Type: Report from Study
  Country: IT (occurrence: IT)
  Receive Date: 20171207
  Receipt Date: 20171207
  Transmission Date: 20180321
  Serious: Yes (Death)
  Sender: FDA-Public Use
  Company Number: PHHO2017IT013154

PATIENT
  Age: 69 Year
  Sex: Female
  Weight: 70 kg

DRUGS (6)
  1. CGS 20267 [Suspect]
     Active Substance: LETROZOLE
     Indication: BREAST CANCER
     Dosage: 3 MG, QD
     Route: 048
     Dates: start: 20170808, end: 20170812
  2. RAMIPRIL. [Concomitant]
     Active Substance: RAMIPRIL
     Indication: DISEASE RISK FACTOR
     Dosage: 5 MG, QD
     Route: 048
     Dates: end: 20170812
  3. ZOLEDRONIC ACID [Concomitant]
     Active Substance: ZOLEDRONIC ACID
     Indication: METASTASES TO BONE
     Dosage: 4 MG, QMO
     Route: 042
     Dates: end: 20170801
  4. BISOPROLOLO [Concomitant]
     Active Substance: BISOPROLOL FUMARATE
     Indication: DISEASE RISK FACTOR
     Dosage: 1 MG, QD
     Route: 048
     Dates: end: 20170812
  5. CARDIOASPIRINA [Concomitant]
     Active Substance: ASPIRIN
     Indication: DISEASE RISK FACTOR
     Dosage: 100 MG, QD
     Route: 048
     Dates: end: 20170812
  6. LEE011 [Suspect]
     Active Substance: RIBOCICLIB
     Indication: BREAST CANCER
     Dosage: 600 MG, 3 WEEKS ON 1 WEEK OFF
     Route: 048
     Dates: start: 20170808, end: 20170812

REACTIONS (1)
  - Respiratory failure [Fatal]

NARRATIVE: CASE EVENT DATE: 20170812
